FAERS Safety Report 7829993-7 (Version None)
Quarter: 2011Q4

REPORT INFORMATION
  Report Type: 
  Country: None (occurrence: None)
  Receive Date: 20111021
  Receipt Date: 20111010
  Transmission Date: 20120403
  Serious: Yes (Hospitalization)
  Sender: FDA-Public Use
  Company Number: FR-EISAI INC-E7389-01638-CLI-FR

PATIENT
  Sex: Female
  Weight: 60 kg

DRUGS (1)
  1. EPIRUBICIN HYDROCHLORIDE [Suspect]
     Indication: BREAST CANCER
     Route: 041
     Dates: start: 20110606, end: 20110915

REACTIONS (2)
  - HAEMATEMESIS [None]
  - THROMBOCYTOPENIA [None]
